FAERS Safety Report 8140910-5 (Version None)
Quarter: 2012Q1

REPORT INFORMATION
  Report Type: 
  Country: None (occurrence: None)
  Receive Date: 20120216
  Receipt Date: 20120207
  Transmission Date: 20120608
  Serious: No
  Sender: FDA-Public Use
  Company Number: US-PFIZER INC-2012034608

PATIENT
  Sex: Female

DRUGS (3)
  1. LO/OVRAL-28 [Suspect]
     Indication: MIGRAINE PROPHYLAXIS
     Dosage: UNK
  2. ZYRTEC [Concomitant]
     Indication: HYPERSENSITIVITY
     Dosage: UNK
  3. LO/OVRAL-28 [Suspect]
     Indication: CONTRACEPTION
     Dosage: UNK

REACTIONS (2)
  - MIGRAINE [None]
  - METRORRHAGIA [None]
